FAERS Safety Report 9976940 (Version 1)
Quarter: 2014Q1

REPORT INFORMATION
  Report Type: Report from Study
  Country: US (occurrence: US)
  Receive Date: 20140306
  Receipt Date: 20140306
  Transmission Date: 20141002
  Serious: No
  Sender: FDA-Public Use
  Company Number: US-ABBVIE-13P-163-1167696-00

PATIENT
  Age: 55 Year
  Sex: Female
  Weight: 56.75 kg

DRUGS (3)
  1. HUMIRA [Suspect]
     Indication: COLITIS ULCERATIVE
     Route: 058
     Dates: start: 201208, end: 2013
  2. HUMIRA [Suspect]
     Route: 058
     Dates: start: 2013
  3. TENORETIC [Concomitant]
     Indication: HYPERTENSION

REACTIONS (2)
  - Paranasal sinus hypersecretion [Recovering/Resolving]
  - Laryngitis [Recovering/Resolving]
